FAERS Safety Report 7537209-4 (Version None)
Quarter: 2011Q2

REPORT INFORMATION
  Report Type: 
  Country: None (occurrence: None)
  Receive Date: 20110609
  Receipt Date: 20110606
  Transmission Date: 20111010
  Serious: Yes (Other)
  Sender: FDA-Public Use
  Company Number: US-PFIZER INC-2011122714

PATIENT
  Sex: Male
  Weight: 108.84 kg

DRUGS (2)
  1. XALATAN [Suspect]
     Indication: INTRAOCULAR PRESSURE INCREASED
     Dosage: 1 GTT IN ONE EYE, DAILY
     Route: 047
  2. DIOVAN [Concomitant]
     Indication: HYPERTENSION
     Dosage: UNK, DAILY
     Route: 048

REACTIONS (1)
  - INTRAOCULAR PRESSURE INCREASED [None]
